FAERS Safety Report 10387506 (Version 1)
Quarter: 2014Q3

REPORT INFORMATION
  Report Type: Spontaneous
  Country: ES (occurrence: ES)
  Receive Date: 20140815
  Receipt Date: 20140815
  Transmission Date: 20150326
  Serious: Yes (Other)
  Sender: FDA-Public Use
  Company Number: ES-CUBIST PHARMACEUTICAL, INC.-2014CBST001173

PATIENT

DRUGS (1)
  1. CUBICIN [Suspect]
     Active Substance: DAPTOMYCIN
     Indication: PRODUCT USED FOR UNKNOWN INDICATION
     Dosage: UNK, UNK, UNK
     Route: 065

REACTIONS (2)
  - Renal neoplasm [Unknown]
  - Neuropathy peripheral [Unknown]
